FAERS Safety Report 9425484 (Version 1)
Quarter: 2013Q3

REPORT INFORMATION
  Report Type: Spontaneous
  Country: US (occurrence: US)
  Receive Date: 20130729
  Receipt Date: 20130729
  Transmission Date: 20140515
  Serious: Yes (Hospitalization, Other)
  Sender: FDA-Public Use
  Company Number: US-MUTUAL PHARMACEUTICAL COMPANY, INC.-BCTM20130072

PATIENT
  Age: 48 Year
  Sex: Female

DRUGS (4)
  1. BACTRIM DS [Suspect]
     Indication: HAEMATURIA
     Route: 048
     Dates: start: 20130415, end: 20130419
  2. BACTRIM DS [Suspect]
     Indication: ABDOMINAL PAIN
  3. BACTRIM DS [Suspect]
     Indication: PELVIC PAIN
  4. LIPITOR [Concomitant]
     Indication: PRODUCT USED FOR UNKNOWN INDICATION
     Route: 048
     Dates: end: 20130419

REACTIONS (5)
  - Cholelithiasis [Recovered/Resolved]
  - Pancreatitis [Recovered/Resolved]
  - Aspartate aminotransferase increased [Recovered/Resolved]
  - Alanine aminotransferase increased [Recovered/Resolved]
  - Off label use [None]
